FAERS Safety Report 7861884-8 (Version None)
Quarter: 2011Q4

REPORT INFORMATION
  Report Type: 
  Country: None (occurrence: None)
  Receive Date: 20111026
  Receipt Date: 20111011
  Transmission Date: 20120403
  Serious: Yes (Other)
  Sender: FDA-Public Use
  Company Number: FK201102295

PATIENT
  Age: 68 Year
  Sex: Male

DRUGS (4)
  1. LEUCOVORIN (CALCIUM FOLINATE) (CALCIUM FOLINATE) [Concomitant]
  2. OXALIPLATIN (OXALIPLATIN) (OXALIPLATIN) [Concomitant]
  3. BEVACIZUMAB (BEVACIZUMAB) (BEVACIZUMAB) [Concomitant]
  4. FLUOROURACIL [Suspect]
     Indication: COLORECTAL CANCER METASTATIC

REACTIONS (7)
  - BLOOD BILIRUBIN UNCONJUGATED INCREASED [None]
  - COLORECTAL CANCER METASTATIC [None]
  - NEOPLASM PROGRESSION [None]
  - SPLENOMEGALY [None]
  - HAEMOLYSIS [None]
  - BLOOD IRON INCREASED [None]
  - PERFORMANCE STATUS DECREASED [None]
